FAERS Safety Report 26166057 (Version 1)
Quarter: 2025Q4

REPORT INFORMATION
  Report Type: Report from Study
  Country: EU (occurrence: EU)
  Receive Date: 20251216
  Receipt Date: 20251216
  Transmission Date: 20260118
  Serious: Yes (Hospitalization)
  Sender: ABBVIE
  Company Number: EU-ABBVIE-6587735

PATIENT
  Age: 67 Year
  Sex: Female

DRUGS (2)
  1. FOSCARBIDOPA\FOSLEVODOPA [Suspect]
     Active Substance: FOSCARBIDOPA\FOSLEVODOPA
     Indication: Parkinson^s disease
     Route: 058
     Dates: start: 20250331, end: 2025
  2. FOSCARBIDOPA\FOSLEVODOPA [Suspect]
     Active Substance: FOSCARBIDOPA\FOSLEVODOPA
     Dosage: DOSE REDUCED TO NIGHT: 0.35ML/H AND DAYTIME DOSE REDUCED TO 0.50ML/H. ED 0.2 LR 0.35 HR 0.55 BR 0...
     Route: 058
     Dates: start: 2025

REACTIONS (3)
  - Anxiety [Not Recovered/Not Resolved]
  - Restlessness [Unknown]
  - Compulsions [Unknown]

NARRATIVE: CASE EVENT DATE: 20250101
